FAERS Safety Report 25803292 (Version 4)
Quarter: 2025Q4

REPORT INFORMATION
  Report Type: Spontaneous
  Country: US (occurrence: US)
  Receive Date: 20250915
  Receipt Date: 20251111
  Transmission Date: 20260118
  Serious: Yes (Other)
  Sender: AMNEAL
  Company Number: US-AMNEAL PHARMACEUTICALS-2025-AMRX-03447

PATIENT

DRUGS (2)
  1. CALCIUM GLUCONATE [Suspect]
     Active Substance: CALCIUM GLUCONATE
     Indication: Product used for unknown indication
     Dosage: 2,000 MG/100 ML
     Route: 065
  2. CALCIUM GLUCONATE [Suspect]
     Active Substance: CALCIUM GLUCONATE
     Dosage: 2G
     Route: 065

REACTIONS (4)
  - Product contamination microbial [Unknown]
  - Product contamination physical [Unknown]
  - Product leakage [Unknown]
  - Product sterility issue [Unknown]

NARRATIVE: CASE EVENT DATE: 20250901
